FAERS Safety Report 6714041-2 (Version None)
Quarter: 2010Q2

REPORT INFORMATION
  Report Type: 
  Country: None (occurrence: None)
  Receive Date: 20100506
  Receipt Date: 20100426
  Transmission Date: 20101027
  Serious: Yes (Other)
  Sender: FDA-Public Use
  Company Number: PHHY2010US26842

PATIENT
  Sex: Male

DRUGS (6)
  1. EXELON [Suspect]
     Dosage: 4.6MG, UNK
     Route: 062
  2. EXELON [Suspect]
     Dosage: 9.5MG, UNK
     Route: 062
  3. NAMENDA [Concomitant]
     Dosage: UNK
  4. ASPIRIN [Concomitant]
     Dosage: 325MG,UNK
  5. NEXIUM [Concomitant]
     Dosage: 40MG, UNK
  6. VITAMINS [Concomitant]

REACTIONS (7)
  - ASTHENIA [None]
  - DIZZINESS [None]
  - GASTROINTESTINAL DISORDER [None]
  - GASTROOESOPHAGEAL REFLUX DISEASE [None]
  - HERNIA HIATUS REPAIR [None]
  - NERVE INJURY [None]
  - TINNITUS [None]
